FAERS Safety Report 11830708 (Version 1)
Quarter: 2015Q4

REPORT INFORMATION
  Report Type: Spontaneous
  Country: GB (occurrence: GB)
  Receive Date: 20151214
  Receipt Date: 20151214
  Transmission Date: 20160305
  Serious: Yes (Life-Threatening, Other)
  Sender: FDA-Public Use
  Company Number: GB-JNJFOC-20151202001

PATIENT
  Age: 15 Month
  Sex: Female

DRUGS (2)
  1. PARACETAMOL [Suspect]
     Active Substance: ACETAMINOPHEN
     Indication: PRODUCT USED FOR UNKNOWN INDICATION
     Route: 065
  2. PARACETAMOL [Suspect]
     Active Substance: ACETAMINOPHEN
     Route: 065

REACTIONS (21)
  - Metabolic acidosis [Recovered/Resolved]
  - Transaminases increased [Recovered/Resolved]
  - Tachycardia [None]
  - Chest X-ray abnormal [None]
  - Haemofiltration [None]
  - Poor peripheral circulation [None]
  - Multi-organ failure [Unknown]
  - Coagulopathy [Recovered/Resolved]
  - Unresponsive to stimuli [None]
  - Sepsis [None]
  - Blood potassium decreased [None]
  - Aspartate aminotransferase increased [None]
  - Hypoglycaemia [None]
  - Blood urea increased [None]
  - Alanine aminotransferase increased [None]
  - Ketoacidosis [None]
  - Respiratory syncytial virus test positive [None]
  - Anuria [None]
  - Blood creatinine increased [None]
  - Streptococcus test positive [None]
  - Activated partial thromboplastin time prolonged [None]
